FAERS Safety Report 4274698-5 (Version None)
Quarter: 2004Q1

REPORT INFORMATION
  Report Type: 
  Country: None (occurrence: None)
  Receive Date: 20040120
  Receipt Date: 20040120
  Transmission Date: 20041129
  Serious: Yes (Other)
  Sender: FDA-Public Use
  Company Number: None

PATIENT
  Age: 32 Year
  Sex: Female

DRUGS (9)
  1. MORPHINE [Suspect]
     Indication: PAIN
     Dosage: IV PRN
     Route: 042
  2. NALBUPHINE [Suspect]
  3. PROMETHAZINE [Suspect]
  4. BIRTH CONTROL TABLETS [Concomitant]
  5. LEXAPRO [Concomitant]
  6. ZEMURAN [Concomitant]
  7. SUFENTA [Concomitant]
  8. ZOFRAN [Concomitant]
  9. .. [Concomitant]

REACTIONS (2)
  - ERYTHEMA [None]
  - URTICARIA [None]
